FAERS Safety Report 9354074 (Version 2)
Quarter: 2013Q2

REPORT INFORMATION
  Report Type: Spontaneous
  Country: NL (occurrence: NL)
  Receive Date: 20130618
  Receipt Date: 20130628
  Transmission Date: 20140414
  Serious: Yes (Other)
  Sender: FDA-Public Use
  Company Number: NL-JNJFOC-20130607486

PATIENT
  Age: 89 Year
  Sex: Female
  Weight: 60 kg

DRUGS (2)
  1. HALDOL [Suspect]
     Indication: RESTLESSNESS
     Route: 048
     Dates: start: 20120901
  2. HALDOL [Suspect]
     Indication: RESTLESSNESS
     Route: 048

REACTIONS (1)
  - Parkinsonism [Recovering/Resolving]
